FAERS Safety Report 5061408-7 (Version None)
Quarter: 2006Q3

REPORT INFORMATION
  Report Type: 
  Country: None (occurrence: None)
  Receive Date: 20060725
  Receipt Date: 20060711
  Transmission Date: 20061208
  Serious: Yes (Congenital Anomaly)
  Sender: FDA-Public Use
  Company Number: US-BOEHRINGER INGELHEIM PHARMACEUTICALS, INC.-2006-BP-08008BP

PATIENT
  Sex: Male
  Weight: 2.485 kg

DRUGS (3)
  1. VIRAMUNE [Suspect]
     Indication: HIV INFECTION
     Route: 015
     Dates: start: 20060404, end: 20060404
  2. TRIZIVIR [Suspect]
     Indication: HIV INFECTION
     Route: 015
     Dates: start: 20051202, end: 20060405
  3. TENOFIVIR [Suspect]
     Indication: HIV INFECTION
     Route: 015
     Dates: start: 20060404, end: 20060405

REACTIONS (3)
  - ATRIAL SEPTAL DEFECT [None]
  - DRUG EXPOSURE DURING PREGNANCY [None]
  - PULMONARY VALVE STENOSIS [None]
